FAERS Safety Report 8508095-0 (Version None)
Quarter: 2012Q2

REPORT INFORMATION
  Report Type: 
  Country: None (occurrence: None)
  Receive Date: 20120405
  Receipt Date: 20090521
  Transmission Date: 20120825
  Serious: Yes (Hospitalization)
  Sender: FDA-Public Use
  Company Number: PHEH2009US01980

PATIENT
  Age: 74 Year
  Sex: Female
  Weight: 113.7 kg

DRUGS (13)
  1. GLYCOLAX (MACROGOL) [Concomitant]
  2. CALCIUM CARBONATE [Concomitant]
  3. METOPROLOL TARTRATE [Concomitant]
  4. AMITRIPTYLINE HCL [Concomitant]
  5. RANITIDINE HYDROCHLORIDE [Concomitant]
  6. DARVON N (DEXTROPROPOXYPHENE NAPSILATE) [Concomitant]
  7. HALDOL [Concomitant]
  8. RECLAST [Suspect]
     Indication: OSTEOPOROSIS POSTMENOPAUSAL
     Dosage: 5 MG, ONCE/SINGLE, INTRAVENOUS
     Route: 042
     Dates: start: 20090124, end: 20090124
  9. XANAX [Concomitant]
  10. NITRUFURANTOIN (NITROFURANTOIN) [Concomitant]
  11. VITAMIN D [Concomitant]
  12. FERROUS SULFATE TAB [Concomitant]
  13. EXTRA STRENGTH TYLENOL [Concomitant]

REACTIONS (4)
  - HEADACHE [None]
  - ARTHRALGIA [None]
  - MYALGIA [None]
  - NAUSEA [None]
